FAERS Safety Report 10589582 (Version 1)
Quarter: 2014Q4

REPORT INFORMATION
  Report Type: Spontaneous
  Country: JP (occurrence: None)
  Receive Date: 20141114
  Receipt Date: 20141114
  Transmission Date: 20150529
  Serious: Yes (Other)
  Sender: FDA-Public Use
  Company Number: JP-ZYDUS-005485

PATIENT
  Age: 73 Year
  Sex: Female

DRUGS (1)
  1. MELOXICAM (MELOXICAM) [Suspect]
     Active Substance: MELOXICAM
     Indication: RHEUMATOID ARTHRITIS
     Dosage: 1.0DAYS

REACTIONS (3)
  - Intestinal diaphragm disease [None]
  - Abdominal pain [None]
  - Gastrointestinal haemorrhage [None]
